FAERS Safety Report 9347425 (Version 3)
Quarter: 2014Q1

REPORT INFORMATION
  Report Type: Spontaneous
  Country: US (occurrence: US)
  Receive Date: 20130613
  Receipt Date: 20140111
  Transmission Date: 20141002
  Serious: No
  Sender: FDA-Public Use
  Company Number: US-009507513-1305USA014875

PATIENT
  Age: 19 Year
  Sex: Female
  Weight: 145.13 kg

DRUGS (1)
  1. IMPLANON [Suspect]
     Indication: CONTRACEPTION
     Dosage: EVERY 3 YEARS, 1 ROD
     Route: 059
     Dates: start: 20120307

REACTIONS (5)
  - Device dislocation [Unknown]
  - Device kink [Unknown]
  - Device breakage [Unknown]
  - Alopecia [Unknown]
  - Abdominal pain [Unknown]
